FAERS Safety Report 7356605-1 (Version None)
Quarter: 2011Q1

REPORT INFORMATION
  Report Type: 
  Country: None (occurrence: None)
  Receive Date: 20110316
  Receipt Date: 20110303
  Transmission Date: 20110831
  Serious: Yes (Other)
  Sender: FDA-Public Use
  Company Number: PHFR2011GB01172

PATIENT
  Sex: Female

DRUGS (6)
  1. FOLIC ACID [Concomitant]
     Dosage: 5 MG, QD
  2. ACLASTA [Suspect]
     Indication: OSTEOPOROSIS
     Dosage: 5 MG, UNK
     Route: 042
     Dates: start: 20101001
  3. SERETIDE [Concomitant]
     Dosage: UNK
  4. CANDESARTAN [Concomitant]
     Dosage: 8 MG, QD
  5. CLOPIDOGREL [Concomitant]
     Dosage: 75 MG, QD
  6. CITALOPRAM HYDROBROMIDE [Concomitant]
     Dosage: 30 MG, QD

REACTIONS (9)
  - ALOPECIA [None]
  - HYPERKERATOSIS [None]
  - HEADACHE [None]
  - DYSPNOEA [None]
  - TREMOR [None]
  - MYALGIA [None]
  - CONFUSIONAL STATE [None]
  - NECK PAIN [None]
  - PRURITUS GENERALISED [None]
